FAERS Safety Report 21144563 (Version 2)
Quarter: 2022Q3

REPORT INFORMATION
  Report Type: Spontaneous
  Country: US (occurrence: US)
  Receive Date: 20220728
  Receipt Date: 20220822
  Transmission Date: 20221027
  Serious: Yes (Hospitalization)
  Sender: FDA-Public Use
  Company Number: US-PFIZER INC-2021206319

PATIENT
  Age: 61 Year
  Sex: Female
  Weight: 53.52 kg

DRUGS (3)
  1. XELJANZ XR [Suspect]
     Active Substance: TOFACITINIB CITRATE
     Indication: Rheumatoid arthritis
     Dosage: 11 MG, 1X/DAY
     Route: 048
     Dates: start: 202002, end: 20220703
  2. RYBELSUS [Concomitant]
     Active Substance: SEMAGLUTIDE
     Indication: Blood glucose abnormal
     Dosage: UNK
  3. METFORMIN [Concomitant]
     Active Substance: METFORMIN HYDROCHLORIDE
     Indication: Blood glucose abnormal
     Dosage: UNK

REACTIONS (1)
  - Spinal disorder [Recovering/Resolving]

NARRATIVE: CASE EVENT DATE: 20220701
